FAERS Safety Report 19446404 (Version 2)
Quarter: 2024Q1

REPORT INFORMATION
  Report Type: Other
  Country: US (occurrence: None)
  Receive Date: 20210622
  Receipt Date: 20240314
  Transmission Date: 20240410
  Serious: Yes (Death, Hospitalization, Other)
  Sender: FDA-Public Use
  Company Number: US-ROCHE-2852656

PATIENT

DRUGS (1)
  1. TRASTUZUMAB [Suspect]
     Active Substance: TRASTUZUMAB
     Indication: Breast cancer
     Route: 065

REACTIONS (38)
  - Sudden death [Fatal]
  - Anaemia [Unknown]
  - Fatigue [Unknown]
  - Dehydration [Unknown]
  - Diarrhoea [Unknown]
  - Hypokalaemia [Unknown]
  - Nausea [Unknown]
  - White blood cell count decreased [Unknown]
  - Febrile neutropenia [Unknown]
  - Vomiting [Unknown]
  - Embolism [Unknown]
  - Pneumonia [Unknown]
  - Atrial fibrillation [Unknown]
  - Fall [Unknown]
  - Urinary tract infection [Unknown]
  - Pneumonitis [Unknown]
  - Syncope [Unknown]
  - Neutrophil count decreased [Unknown]
  - Sepsis [Unknown]
  - Oedema [Unknown]
  - Non-cardiac chest pain [Unknown]
  - Pyrexia [Unknown]
  - Upper respiratory tract infection [Unknown]
  - Angina pectoris [Unknown]
  - Hypersensitivity [Unknown]
  - Cardiac failure [Unknown]
  - Neutropenia [Unknown]
  - Dyspnoea [Unknown]
  - Large intestine perforation [Unknown]
  - Haemoglobin decreased [Unknown]
  - Febrile neutropenia [Unknown]
  - Platelet count decreased [Unknown]
  - Infection [Fatal]
  - Neutrophil count abnormal [Unknown]
  - Thrombosis [Unknown]
  - Hyponatraemia [Unknown]
  - Neuropathy peripheral [Unknown]
  - Asthenia [Unknown]
